FAERS Safety Report 9001574 (Version 2)
Quarter: 2013Q1

REPORT INFORMATION
  Report Type: Spontaneous
  Country: US (occurrence: US)
  Receive Date: 20130107
  Receipt Date: 20130218
  Transmission Date: 20140127
  Serious: No
  Sender: FDA-Public Use
  Company Number: US-PFIZER INC-2013005373

PATIENT
  Age: 80 Year
  Sex: Female
  Weight: 107 kg

DRUGS (3)
  1. CELEBREX [Suspect]
     Indication: ARTHRITIS
     Dosage: 200 MG, DAILY
  2. CELEBREX [Suspect]
     Indication: PAIN
     Dosage: 100 MG, DAILY
  3. TYLENOL [Suspect]
     Indication: PAIN
     Dosage: 1300 MG, ONCE

REACTIONS (3)
  - Gait disturbance [Unknown]
  - Pain [Not Recovered/Not Resolved]
  - Drug ineffective [Unknown]
